FAERS Safety Report 18232371 (Version 1)
Quarter: 2020Q3

REPORT INFORMATION
  Report Type: Spontaneous
  Country: US (occurrence: US)
  Receive Date: 20200904
  Receipt Date: 20200904
  Transmission Date: 20201103
  Serious: Yes (Other)
  Sender: FDA-Public Use
  Company Number: US-AMERICAN REGENT INC-2020000332

PATIENT
  Age: 76 Year
  Sex: Female

DRUGS (2)
  1. INJECTAFER [Suspect]
     Active Substance: FERRIC CARBOXYMALTOSE
     Indication: SMALL INTESTINE ULCER
     Dosage: 750 MILLIGRAM SINGLE
     Dates: start: 20191121, end: 20191121
  2. INJECTAFER [Suspect]
     Active Substance: FERRIC CARBOXYMALTOSE
     Indication: MALABSORPTION
     Dosage: 750 MILLIGRAM SINGLE
     Dates: start: 20191202, end: 20191202

REACTIONS (3)
  - Injection site discolouration [Not Recovered/Not Resolved]
  - Product use in unapproved indication [Unknown]
  - Injection site bruising [Unknown]

NARRATIVE: CASE EVENT DATE: 20191121
